FAERS Safety Report 14655374 (Version 1)
Quarter: 2018Q1

REPORT INFORMATION
  Report Type: Other
  Country: CA (occurrence: CA)
  Receive Date: 20180319
  Receipt Date: 20180319
  Transmission Date: 20180509
  Serious: Yes (Hospitalization)
  Sender: FDA-Public Use
  Company Number: CA-HLSUS-2018-CA-000447

PATIENT
  Age: 52 Year
  Sex: Female
  Weight: 89 kg

DRUGS (7)
  1. CALCIUM [Concomitant]
     Active Substance: CALCIUM
     Indication: PRODUCT USED FOR UNKNOWN INDICATION
     Dosage: 1200 MG ONE EVERY 24 HOURS
     Route: 048
  2. CLOZAPINE. [Suspect]
     Active Substance: CLOZAPINE
     Dosage: 200 MG ONCE A DAY
     Route: 065
  3. PANTOPRAZOLE MAGNESIUM [Concomitant]
     Active Substance: PANTOPRAZOLE MAGNESIUM
     Indication: PRODUCT USED FOR UNKNOWN INDICATION
     Dosage: 40 MG 2 EVERY ONE DAY
     Route: 048
  4. METRONIDAZOLE. [Concomitant]
     Active Substance: METRONIDAZOLE
     Indication: PRODUCT USED FOR UNKNOWN INDICATION
     Dosage: 1 PERCENT 2 EVERY ONE DAY
     Route: 061
  5. AA-CLOZAPINE [Suspect]
     Active Substance: CLOZAPINE
     Indication: SCHIZOPHRENIA
     Dosage: 200 MG ONE EVERY 24 HOURS
     Route: 048
  6. SERTRALINE HYDROCHLORIDE. [Concomitant]
     Active Substance: SERTRALINE HYDROCHLORIDE
     Indication: PRODUCT USED FOR UNKNOWN INDICATION
     Dosage: 100 MG ONE EVERY 24 HOURS
     Route: 048
  7. VITAMIN D [Concomitant]
     Active Substance: CHOLECALCIFEROL
     Indication: PRODUCT USED FOR UNKNOWN INDICATION
     Dosage: 1000 INTERNATIONAL UNIT ONE EVERY 24 HOURS
     Route: 048

REACTIONS (6)
  - Gastrointestinal haemorrhage [Recovered/Resolved]
  - Neutrophil count decreased [Recovered/Resolved]
  - Microcytic anaemia [Recovered/Resolved]
  - Erosive oesophagitis [Recovered/Resolved]
  - Haematochezia [Recovered/Resolved]
  - White blood cell count decreased [Recovered/Resolved]
